FAERS Safety Report 24731274 (Version 3)
Quarter: 2025Q3

REPORT INFORMATION
  Report Type: Spontaneous
  Country: US (occurrence: US)
  Receive Date: 20241213
  Receipt Date: 20250816
  Transmission Date: 20251021
  Serious: No
  Sender: ALEXION PHARMACEUTICALS
  Company Number: US-AstraZeneca-CH-00762942AP

PATIENT
  Age: 65 Year

DRUGS (1)
  1. FASENRA [Suspect]
     Active Substance: BENRALIZUMAB
     Route: 065

REACTIONS (3)
  - Hypoacusis [Unknown]
  - Needle issue [Unknown]
  - Complication associated with device [Unknown]

NARRATIVE: CASE EVENT DATE: 20241205
